FAERS Safety Report 7105102-7 (Version None)
Quarter: 2010Q4

REPORT INFORMATION
  Report Type: 
  Country: None (occurrence: None)
  Receive Date: 20101109
  Receipt Date: 20101025
  Transmission Date: 20110411
  Serious: Yes (Hospitalization)
  Sender: FDA-Public Use
  Company Number: 1000017093

PATIENT
  Age: 87 Year
  Sex: Male

DRUGS (8)
  1. MEMANTINE HCL [Suspect]
     Dosage: 20 MG (10 MG, 2 IN 1 D), ORAL, 80 MG (40 MG, 2 IN 1 D), ORAL
     Route: 048
     Dates: end: 20100905
  2. MEMANTINE HCL [Suspect]
     Dosage: 20 MG (10 MG, 2 IN 1 D), ORAL, 80 MG (40 MG, 2 IN 1 D), ORAL
     Route: 048
     Dates: start: 20100905, end: 20100912
  3. MEMANTINE HCL [Suspect]
     Dates: start: 20100901
  4. EXELON (RIVASTIGMINE) (RIVASTIGMINE) [Concomitant]
  5. OMEPRAZOLE [Concomitant]
  6. DOMPERIDONE (DOMPERIDONE) 9DOMPERIDONE) [Concomitant]
  7. AVODART (DUTASERIDE) (DUTSASERIDE) [Concomitant]
  8. OVERDOSE V[13.1] [Concomitant]

REACTIONS (5)
  - ALTERED STATE OF CONSCIOUSNESS [None]
  - CONVULSION [None]
  - DEPRESSED LEVEL OF CONSCIOUSNESS [None]
  - MEDICATION ERROR [None]
  - OVERDOSE [None]
